FAERS Safety Report 6174480-8 (Version None)
Quarter: 2009Q2

REPORT INFORMATION
  Report Type: 
  Country: None (occurrence: None)
  Receive Date: 20090430
  Receipt Date: 20080623
  Transmission Date: 20091009
  Serious: No
  Sender: FDA-Public Use
  Company Number: US-ASTRAZENECA-2008UW12568

PATIENT
  Age: 44 Year
  Sex: Male

DRUGS (1)
  1. NEXIUM [Suspect]
     Indication: REFLUX OESOPHAGITIS
     Route: 048
     Dates: start: 20080501

REACTIONS (4)
  - DRY MOUTH [None]
  - INSOMNIA [None]
  - JAW DISORDER [None]
  - RESTLESS LEGS SYNDROME [None]
